FAERS Safety Report 23073522 (Version 2)
Quarter: 2023Q4

REPORT INFORMATION
  Report Type: Spontaneous
  Country: FR (occurrence: FR)
  Receive Date: 20231017
  Receipt Date: 20231030
  Transmission Date: 20240109
  Serious: Yes (Hospitalization)
  Sender: FDA-Public Use
  Company Number: FR-AUROBINDO-AUR-APL-2023-063681

PATIENT
  Age: 57 Year
  Sex: Male

DRUGS (9)
  1. PREDNISOLONE [Suspect]
     Active Substance: PREDNISOLONE
     Indication: Asthma
     Dosage: 30 MILLIGRAM, ONCE A DAY
     Route: 048
     Dates: start: 2008
  2. PREDNISOLONE [Suspect]
     Active Substance: PREDNISOLONE
     Indication: Asthma late onset
     Dosage: 10 MILLIGRAM, ONCE A DAY
     Route: 048
     Dates: start: 2008
  3. PREDNISOLONE [Suspect]
     Active Substance: PREDNISOLONE
     Dosage: 60 MILLIGRAM, ONCE A DAY
     Route: 048
     Dates: start: 2008
  4. DUPILUMAB [Concomitant]
     Active Substance: DUPILUMAB
     Indication: Asthma
     Dosage: UNK
     Route: 065
     Dates: start: 20211130, end: 20220309
  5. DUPILUMAB [Concomitant]
     Active Substance: DUPILUMAB
     Indication: Asthma late onset
  6. MEPOLIZUMAB [Concomitant]
     Active Substance: MEPOLIZUMAB
     Indication: Asthma
     Dosage: UNK
     Route: 065
     Dates: start: 2021, end: 20211102
  7. MEPOLIZUMAB [Concomitant]
     Active Substance: MEPOLIZUMAB
     Indication: Asthma late onset
  8. OMALIZUMAB [Concomitant]
     Active Substance: OMALIZUMAB
     Indication: Asthma
     Dosage: UNK
     Route: 065
     Dates: start: 2008
  9. OMALIZUMAB [Concomitant]
     Active Substance: OMALIZUMAB
     Indication: Asthma late onset

REACTIONS (7)
  - Cough [Unknown]
  - Headache [Unknown]
  - Pyrexia [Unknown]
  - Steroid dependence [Unknown]
  - Asthma [Unknown]
  - Eosinophil count increased [Unknown]
  - Drug ineffective [Unknown]
